FAERS Safety Report 7529398-2 (Version None)
Quarter: 2011Q2

REPORT INFORMATION
  Report Type: 
  Country: None (occurrence: None)
  Receive Date: 20110607
  Receipt Date: 20110607
  Transmission Date: 20111010
  Serious: Yes (Other)
  Sender: FDA-Public Use
  Company Number: BR-PFIZER INC-2011097182

PATIENT
  Age: 39 Year
  Sex: Female
  Weight: 62 kg

DRUGS (2)
  1. PANTOPRAZOLE [Suspect]
     Indication: GASTRITIS
  2. PANTOPRAZOLE [Suspect]
     Indication: OESOPHAGITIS
     Dosage: 40 MG, 1X/DAY
     Route: 048
     Dates: start: 20110407, end: 20110410

REACTIONS (6)
  - RASH [None]
  - BACK PAIN [None]
  - CHEST PAIN [None]
  - PERIPHERAL COLDNESS [None]
  - BURNING SENSATION [None]
  - FEELING HOT [None]
